FAERS Safety Report 23211632 (Version 1)
Quarter: 2023Q4

REPORT INFORMATION
  Report Type: Spontaneous
  Country: US (occurrence: US)
  Receive Date: 20231121
  Receipt Date: 20231121
  Transmission Date: 20240110
  Serious: Yes (Other)
  Sender: FDA-Public Use
  Company Number: US-ENDO-CASE-0042900

PATIENT
  Sex: Male

DRUGS (4)
  1. PERCOCET [Suspect]
     Active Substance: ACETAMINOPHEN\OXYCODONE HYDROCHLORIDE
  2. ACETAMINOPHEN\OXYCODONE HYDROCHLORIDE [Suspect]
     Active Substance: ACETAMINOPHEN\OXYCODONE HYDROCHLORIDE
  3. HYDROCODONE POLISTIREX AND CHLORPHENIRAMINE POLISTIREX [Suspect]
     Active Substance: CHLORPHENIRAMINE MALEATE\HYDROCODONE BITARTRATE
  4. OXYCODONE [Suspect]
     Active Substance: OXYCODONE

REACTIONS (15)
  - Overdose [Unknown]
  - Dependence [Unknown]
  - Confusional state [Unknown]
  - Amnesia [Unknown]
  - Abdominal pain [Unknown]
  - Dizziness [Unknown]
  - Breathing-related sleep disorder [Unknown]
  - Lung disorder [Unknown]
  - Chest pain [Unknown]
  - Dizziness [Unknown]
  - Liver disorder [Unknown]
  - Renal disorder [Unknown]
  - Thyroid disorder [Unknown]
  - Eye disorder [Unknown]
  - Arthralgia [Unknown]
